FAERS Safety Report 15545257 (Version 2)
Quarter: 2018Q4

REPORT INFORMATION
  Report Type: Spontaneous
  Country: US (occurrence: US)
  Receive Date: 20181024
  Receipt Date: 20181207
  Transmission Date: 20190205
  Serious: No
  Sender: FDA-Public Use
  Company Number: US-PFIZER INC-2018421156

PATIENT
  Age: 69 Year
  Sex: Female
  Weight: 76 kg

DRUGS (8)
  1. PREMARIN [Suspect]
     Active Substance: ESTROGENS, CONJUGATED
     Dosage: 0.625 MG/G, ALTERNATE DAY (EVERY OTHER NIGHT)
     Dates: start: 20181001
  2. CENTRUM SILVER WOMEN 50+ [Concomitant]
     Dosage: UNK
  3. PREMARIN [Suspect]
     Active Substance: ESTROGENS, CONJUGATED
     Dosage: UNK
  4. PREMARIN [Suspect]
     Active Substance: ESTROGENS, CONJUGATED
     Indication: VULVOVAGINAL DRYNESS
     Dosage: 1 G, UNK (AT BEDTIME EVERY NIGHT FOR 3 WEEKS)
     Route: 067
     Dates: start: 20180907
  5. NARDIL [Concomitant]
     Active Substance: PHENELZINE SULFATE
     Indication: DEPRESSION
     Dosage: DAILY (TABLETS IN THE MORNING AND 1.5 TABLETS AT BEDTIME)
     Route: 048
  6. VITAMIN D3 [Concomitant]
     Active Substance: CHOLECALCIFEROL
     Dosage: UNK
  7. XANAX [Concomitant]
     Active Substance: ALPRAZOLAM
     Indication: PANIC ATTACK
     Dosage: 0.25 MG, 2X/DAY
     Route: 048
  8. PREMARIN [Suspect]
     Active Substance: ESTROGENS, CONJUGATED
     Dosage: UNK (TWICE A WEEK FOR THE 4TH WEEK)

REACTIONS (7)
  - Intentional product misuse [Unknown]
  - Alopecia [Unknown]
  - Product use issue [Unknown]
  - Dyspareunia [Unknown]
  - Vaginal disorder [Unknown]
  - Drug ineffective [Unknown]
  - Weight fluctuation [Unknown]
